FAERS Safety Report 6440744-3 (Version None)
Quarter: 2009Q4

REPORT INFORMATION
  Report Type: 
  Country: None (occurrence: None)
  Receive Date: 20091116
  Receipt Date: 20091015
  Transmission Date: 20100525
  Serious: No
  Sender: FDA-Public Use
  Company Number: US-BAYER-200936492NA

PATIENT
  Sex: Female

DRUGS (1)
  1. AVELOX [Suspect]
     Indication: DRUG USE FOR UNKNOWN INDICATION
     Dates: start: 20091002, end: 20091011

REACTIONS (6)
  - BURNING SENSATION [None]
  - HYPERSENSITIVITY [None]
  - HYPOAESTHESIA [None]
  - MYALGIA [None]
  - PRURITUS [None]
  - RASH [None]
